FAERS Safety Report 11756795 (Version 1)
Quarter: 2015Q4

REPORT INFORMATION
  Report Type: Spontaneous
  Country: JP (occurrence: JP)
  Receive Date: 20151120
  Receipt Date: 20151120
  Transmission Date: 20160304
  Serious: Yes (Hospitalization, Other)
  Sender: FDA-Public Use
  Company Number: JP-TAKEDA-2015TJP021414

PATIENT
  Age: 87 Year
  Sex: Male

DRUGS (2)
  1. NESINA [Suspect]
     Active Substance: ALOGLIPTIN BENZOATE
     Indication: TYPE 2 DIABETES MELLITUS
     Dosage: 12.5 MG, UNK
     Route: 048
  2. CIBENZOLINE SUCCINATE [Suspect]
     Active Substance: CIFENLINE SUCCINATE
     Indication: ATRIAL FIBRILLATION
     Dosage: 400 MG, UNK
     Route: 065

REACTIONS (5)
  - Toxicity to various agents [Unknown]
  - Hyperinsulinism [Unknown]
  - Cardiac failure [Unknown]
  - Liver disorder [Unknown]
  - Hypoglycaemia [Recovered/Resolved]
